FAERS Safety Report 9052627 (Version 3)
Quarter: 2013Q4

REPORT INFORMATION
  Report Type: Report from Study
  Country: JP (occurrence: JP)
  Receive Date: 20130207
  Receipt Date: 20131120
  Transmission Date: 20140711
  Serious: Yes (Other)
  Sender: FDA-Public Use
  Company Number: JP-VERTEX PHARMACEUTICALS INC.-2013-001547

PATIENT
  Age: 54 Year
  Sex: Female

DRUGS (33)
  1. VX-950 (TELAPREVIR) [Suspect]
     Indication: CHRONIC HEPATITIS C
     Dosage: 2250 MG, QD
     Route: 048
     Dates: start: 20120802, end: 20120918
  2. REBETOL [Suspect]
     Indication: CHRONIC HEPATITIS C
     Dosage: 400 MG, QD
     Route: 048
     Dates: start: 20120801, end: 20120823
  3. REBETOL [Suspect]
     Dosage: 200 MG, QD
     Route: 048
     Dates: start: 20120824, end: 20120918
  4. REBETOL [Suspect]
     Dosage: 200 MG, QD
     Route: 048
     Dates: start: 20121005, end: 20121127
  5. REBETOL [Suspect]
     Dosage: 400 MG, QD
     Route: 048
     Dates: start: 20121128, end: 20130130
  6. PEGINTERFERON ALFA-2B [Suspect]
     Indication: CHRONIC HEPATITIS C
     Dosage: 1.5 ?G/KG, QW
     Route: 058
     Dates: start: 20120802, end: 20120918
  7. PEGINTERFERON ALFA-2B [Suspect]
     Dosage: 1.5 ?G/KG, QW
     Route: 058
     Dates: start: 20121005, end: 20121214
  8. PEGINTERFERON ALFA-2B [Suspect]
     Dosage: 0.75 ?G/KG, QW
     Route: 058
     Dates: start: 20121221, end: 20130130
  9. MUCOSTA [Concomitant]
     Dosage: 300 MG, QD
     Route: 048
     Dates: start: 20120801
  10. MUCOSTA [Concomitant]
     Dosage: 300 MG, QD
     Route: 048
     Dates: start: 20120814
  11. MUCOSTA [Concomitant]
     Dosage: 300 MG, QD
     Route: 048
     Dates: start: 20120824
  12. MUCOSTA [Concomitant]
     Dosage: 300 MG, QD
     Route: 048
     Dates: start: 20120831
  13. MUCOSTA [Concomitant]
     Dosage: 300 MG, QD
     Route: 048
     Dates: start: 20120914
  14. OMEPRAL [Concomitant]
     Dosage: 20 MG, QD
     Route: 048
     Dates: start: 20120801
  15. OMEPRAL [Concomitant]
     Dosage: 20 MG, QD
     Route: 048
     Dates: start: 20120814
  16. OMEPRAL [Concomitant]
     Dosage: 20 MG, QD
     Route: 048
     Dates: start: 20120824
  17. OMEPRAL [Concomitant]
     Dosage: 20 MG, QD
     Route: 048
     Dates: start: 20120831
  18. OMEPRAL [Concomitant]
     Dosage: 20 MG, QD
     Route: 048
     Dates: start: 20120914
  19. LOXONIN [Concomitant]
     Dosage: 60 MG, QD
     Route: 048
     Dates: start: 20120801
  20. LOXONIN [Concomitant]
     Dosage: 60 MG, QD
     Route: 048
     Dates: start: 20120803
  21. LOXONIN [Concomitant]
     Dosage: 60 MG, QD
     Route: 048
     Dates: start: 20120812
  22. LOXONIN [Concomitant]
     Dosage: 60 MG, QD
     Route: 048
     Dates: start: 20120814
  23. LOXONIN [Concomitant]
     Dosage: 60 MG, QD
     Route: 048
     Dates: start: 20120824
  24. LOXONIN [Concomitant]
     Dosage: 60 MG, QD
     Route: 048
     Dates: start: 20120831
  25. LOXONIN [Concomitant]
     Dosage: 60 MG, QD
     Route: 048
     Dates: start: 20120914
  26. LOXONIN [Concomitant]
     Dosage: 60 MG, QD
     Route: 048
     Dates: start: 20121221
  27. MOHRUS [Concomitant]
     Dosage: 1 PACK (6 SHEETS/PACK)
     Route: 061
     Dates: start: 20120806, end: 20120810
  28. PRIMPERAN COMPLEX [Concomitant]
     Dosage: 5 MG, QD
     Route: 048
     Dates: start: 20120810
  29. PRIMPERAN COMPLEX [Concomitant]
     Dosage: 5 MG, QD
     Route: 048
     Dates: start: 20120814
  30. PRIMPERAN COMPLEX [Concomitant]
     Dosage: 5 MG, QD
     Route: 048
     Dates: start: 20120824
  31. METHADERM [Concomitant]
     Dosage: 10 DF, QD
     Route: 061
     Dates: start: 20120921
  32. METHADERM [Concomitant]
     Dosage: 10 DF, QD
     Route: 061
     Dates: start: 20120921
  33. PL GRAN. [Concomitant]
     Dosage: 4 G, QD
     Route: 048
     Dates: start: 20120928

REACTIONS (1)
  - Neutrophil count decreased [Recovered/Resolved]
